FAERS Safety Report 7461589-1 (Version None)
Quarter: 2011Q2

REPORT INFORMATION
  Report Type: 
  Country: None (occurrence: None)
  Receive Date: 20110428
  Receipt Date: 20110413
  Transmission Date: 20111010
  Serious: Yes (Hospitalization, Other)
  Sender: FDA-Public Use
  Company Number: 2009S1003239

PATIENT
  Age: 49 Year
  Sex: Female

DRUGS (11)
  1. MORPHINE [Concomitant]
  2. DEXEDRINE [Concomitant]
  3. FERROUS SULFATE TAB [Concomitant]
  4. IBUPROFEN [Concomitant]
  5. METHADONE HCL [Concomitant]
  6. EFFEXOR [Concomitant]
  7. CIPROFLOXACIN [Concomitant]
  8. SODIUM PHOSPHATE DIBASIC/SODIUM PHOSPHATE MONOBASIC (ANHYDRATE) [Suspect]
     Indication: COLONOSCOPY
     Dosage: ; PO
     Route: 048
     Dates: start: 20080301, end: 20080301
  9. SERTRALINE HYDROCHLORIDE [Concomitant]
  10. FLEXERIL [Concomitant]
  11. VITAMIN B-12 [Concomitant]

REACTIONS (10)
  - URINARY TRACT INFECTION [None]
  - SEPSIS [None]
  - KIDNEY FIBROSIS [None]
  - HYPERTENSION [None]
  - IRON DEFICIENCY ANAEMIA [None]
  - RENAL FAILURE ACUTE [None]
  - PYELONEPHRITIS ACUTE [None]
  - RENAL FAILURE CHRONIC [None]
  - NEPHROLITHIASIS [None]
  - HYDRONEPHROSIS [None]
